FAERS Safety Report 19275857 (Version 3)
Quarter: 2021Q2

REPORT INFORMATION
  Report Type: Report from Study
  Country: US (occurrence: US)
  Receive Date: 20210519
  Receipt Date: 20210601
  Transmission Date: 20210717
  Serious: Yes (Hospitalization)
  Sender: FDA-Public Use
  Company Number: US-JNJFOC-20210520275

PATIENT
  Age: 65 Year
  Sex: Female
  Weight: 73.2 kg

DRUGS (4)
  1. OPSUMIT [Suspect]
     Active Substance: MACITENTAN
     Indication: PULMONARY ARTERIAL HYPERTENSION
     Route: 048
  2. ELIQUIS [Concomitant]
     Active Substance: APIXABAN
  3. TADALAFIL. [Concomitant]
     Active Substance: TADALAFIL
  4. UPTRAVI [Suspect]
     Active Substance: SELEXIPAG
     Indication: PULMONARY ARTERIAL HYPERTENSION
     Route: 048

REACTIONS (5)
  - Fluid overload [Unknown]
  - Gastrointestinal disorder [Unknown]
  - Palpitations [Unknown]
  - Chest pain [Unknown]
  - Central venous catheterisation [Unknown]

NARRATIVE: CASE EVENT DATE: 202105
